FAERS Safety Report 25288220 (Version 1)
Quarter: 2025Q2

REPORT INFORMATION
  Report Type: Spontaneous
  Country: US (occurrence: None)
  Receive Date: 20250509
  Receipt Date: 20250509
  Transmission Date: 20250716
  Serious: No
  Sender: FDA-CTU
  Company Number: None

PATIENT
  Sex: Male

DRUGS (1)
  1. TALTZ [Suspect]
     Active Substance: IXEKIZUMAB
     Indication: Psoriasis
     Dosage: 80 MG  EVERY 4 WEEKS SUBCUTANEOUS?
     Route: 058
     Dates: start: 20241211

REACTIONS (5)
  - Opportunistic infection [None]
  - Pruritus [None]
  - Cyst [None]
  - Asthenia [None]
  - Muscle fatigue [None]
